FAERS Safety Report 6006572-8 (Version None)
Quarter: 2008Q4

REPORT INFORMATION
  Report Type: 
  Country: None (occurrence: None)
  Receive Date: 20081217
  Receipt Date: 20081212
  Transmission Date: 20090506
  Serious: Yes (Life-Threatening, Hospitalization)
  Sender: FDA-Public Use
  Company Number: US-MERCK-0812USA02048

PATIENT
  Sex: Male

DRUGS (10)
  1. JANUVIA [Suspect]
     Indication: DIABETES MELLITUS
     Route: 048
     Dates: end: 20081011
  2. PLAVIX [Concomitant]
     Route: 065
  3. PREVACID [Concomitant]
     Route: 065
  4. ZOCOR [Concomitant]
     Route: 048
  5. AVAPRO [Concomitant]
     Route: 065
  6. ZESTRIL [Concomitant]
     Route: 065
  7. LANTUS [Concomitant]
     Route: 065
  8. COLCHICINE [Concomitant]
     Route: 065
  9. VALIUM [Concomitant]
     Route: 065
  10. BETAPACE [Concomitant]
     Route: 065

REACTIONS (1)
  - PANCREATITIS [None]
